FAERS Safety Report 24045246 (Version 1)
Quarter: 2024Q3

REPORT INFORMATION
  Report Type: Spontaneous
  Country: AR (occurrence: AR)
  Receive Date: 20240703
  Receipt Date: 20240703
  Transmission Date: 20241017
  Serious: Yes (Other)
  Sender: TEVA
  Company Number: AR-TEVA-VS-3143619

PATIENT
  Sex: Male

DRUGS (1)
  1. MEMANTINE [Suspect]
     Active Substance: MEMANTINE
     Indication: Dementia Alzheimer^s type
     Route: 048
     Dates: start: 202312, end: 202402

REACTIONS (4)
  - Thrombosis [Recovered/Resolved]
  - Dizziness [Recovered/Resolved]
  - Feeling hot [Recovered/Resolved]
  - Pyrexia [Recovered/Resolved]
